FAERS Safety Report 7183233-3 (Version None)
Quarter: 2010Q4

REPORT INFORMATION
  Report Type: 
  Country: None (occurrence: None)
  Receive Date: 20101222
  Receipt Date: 20100326
  Transmission Date: 20110411
  Serious: No
  Sender: FDA-Public Use
  Company Number: A0850722A

PATIENT
  Sex: Female

DRUGS (4)
  1. FLOVENT [Suspect]
     Route: 065
  2. SYMBICORT [Suspect]
  3. RESCUE REMEDY [Concomitant]
  4. AZMACORT [Concomitant]

REACTIONS (4)
  - DRUG INEFFECTIVE [None]
  - DYSPHONIA [None]
  - OROPHARYNGEAL PAIN [None]
  - WHEEZING [None]
